FAERS Safety Report 9291757 (Version 2)
Quarter: 2013Q2

REPORT INFORMATION
  Report Type: Spontaneous
  Country: US (occurrence: US)
  Receive Date: 20130516
  Receipt Date: 20130620
  Transmission Date: 20140414
  Serious: No
  Sender: FDA-Public Use
  Company Number: US-009507513-1305USA007456

PATIENT
  Age: 55 Year
  Sex: Female
  Weight: 71.2 kg

DRUGS (1)
  1. SAPHRIS [Suspect]
     Indication: BORDERLINE PERSONALITY DISORDER
     Dosage: 10 MG, HS
     Route: 060
     Dates: start: 20130331, end: 20130420

REACTIONS (2)
  - Swollen tongue [Recovered/Resolved]
  - Mouth ulceration [Recovered/Resolved]
